FAERS Safety Report 25954925 (Version 2)
Quarter: 2025Q4

REPORT INFORMATION
  Report Type: Spontaneous
  Country: US (occurrence: US)
  Receive Date: 20251024
  Receipt Date: 20251125
  Transmission Date: 20260118
  Serious: No
  Sender: BRISTOL-MYERS SQUIBB COMPANY
  Company Number: US-BRISTOL-MYERS SQUIBB COMPANY-2025-144981

PATIENT
  Age: 75 Year
  Sex: Male

DRUGS (1)
  1. REVLIMID [Suspect]
     Active Substance: LENALIDOMIDE
     Indication: Product used for unknown indication
     Route: 048

REACTIONS (7)
  - Feeling cold [Unknown]
  - Tremor [Unknown]
  - Pruritus [Unknown]
  - Swelling [Unknown]
  - Hyperhidrosis [Unknown]
  - Fatigue [Unknown]
  - White blood cell count decreased [Unknown]
